FAERS Safety Report 12779267 (Version 1)
Quarter: 2016Q3

REPORT INFORMATION
  Report Type: Spontaneous
  Country: US (occurrence: US)
  Receive Date: 20160923
  Receipt Date: 20160923
  Transmission Date: 20161109
  Serious: No
  Sender: FDA-Public Use
  Company Number: None

PATIENT

DRUGS (6)
  1. IBUPROFEN 600MG TABS [Suspect]
     Active Substance: IBUPROFEN
     Indication: MUSCLE SPASMS
     Route: 048
     Dates: start: 20160820, end: 20160821
  2. CYCLOBENZAPRINE HCL 10 MG TABS [Suspect]
     Active Substance: CYCLOBENZAPRINE HYDROCHLORIDE
     Dates: start: 20160820, end: 20160821
  3. IBUPROFEN 600MG TABS [Suspect]
     Active Substance: IBUPROFEN
     Indication: POST-TRAUMATIC NECK SYNDROME
     Route: 048
     Dates: start: 20160820, end: 20160821
  4. IBUPROFEN 600MG TABS [Suspect]
     Active Substance: IBUPROFEN
     Indication: ROAD TRAFFIC ACCIDENT
     Route: 048
     Dates: start: 20160820, end: 20160821
  5. PREDNISONE. [Concomitant]
     Active Substance: PREDNISONE
  6. ALEVE [Concomitant]
     Active Substance: NAPROXEN SODIUM

REACTIONS (3)
  - Headache [None]
  - Malaise [None]
  - Heart rate increased [None]
